FAERS Safety Report 12049482 (Version 1)
Quarter: 2016Q1

REPORT INFORMATION
  Report Type: Report from Study
  Country: US (occurrence: US)
  Receive Date: 20160209
  Receipt Date: 20160209
  Transmission Date: 20160526
  Serious: No
  Sender: FDA-Public Use
  Company Number: US-ABBVIE-15P-163-1426160-00

PATIENT
  Age: 56 Year
  Sex: Female

DRUGS (1)
  1. HUMIRA [Suspect]
     Active Substance: ADALIMUMAB
     Indication: CROHN^S DISEASE
     Route: 058
     Dates: start: 20121101

REACTIONS (5)
  - Toothache [Not Recovered/Not Resolved]
  - Pain in extremity [Unknown]
  - Hidradenitis [Unknown]
  - Crohn^s disease [Recovering/Resolving]
  - Furuncle [Unknown]

NARRATIVE: CASE EVENT DATE: 20150704
